FAERS Safety Report 7500058-7 (Version None)
Quarter: 2011Q2

REPORT INFORMATION
  Report Type: 
  Country: None (occurrence: None)
  Receive Date: 20110524
  Receipt Date: 20110321
  Transmission Date: 20111010
  Serious: No
  Sender: FDA-Public Use
  Company Number: US-NOVEN-11US002053

PATIENT
  Sex: Male
  Weight: 35.828 kg

DRUGS (2)
  1. CELEXA [Concomitant]
     Indication: ANXIETY
     Dosage: 10 MG, UNKNOWN
     Route: 048
  2. DAYTRANA [Suspect]
     Indication: PRODUCT USED FOR UNKNOWN INDICATION
     Dosage: 10 MG, UNKNOWN
     Route: 062
     Dates: start: 20110101

REACTIONS (2)
  - APPLICATION SITE RASH [None]
  - APPLICATION SITE ERYTHEMA [None]
